FAERS Safety Report 25104717 (Version 1)
Quarter: 2025Q1

REPORT INFORMATION
  Report Type: Spontaneous
  Country: US (occurrence: US)
  Receive Date: 20250321
  Receipt Date: 20250321
  Transmission Date: 20250409
  Serious: Yes (Hospitalization, Other)
  Sender: NOVARTIS
  Company Number: US-002147023-NVSC2025US046516

PATIENT
  Sex: Male

DRUGS (2)
  1. MEKINIST [Suspect]
     Active Substance: TRAMETINIB DIMETHYL SULFOXIDE
     Indication: Langerhans^ cell histiocytosis
     Dosage: 2 MG, QD
     Route: 048
     Dates: start: 201805
  2. ACTEMRA [Concomitant]
     Active Substance: TOCILIZUMAB
     Indication: Sarcoidosis
     Route: 065

REACTIONS (2)
  - Pulmonary fibrosis [Unknown]
  - Renal failure [Unknown]
